FAERS Safety Report 13148406 (Version 1)
Quarter: 2017Q1

REPORT INFORMATION
  Report Type: Spontaneous
  Country: US (occurrence: US)
  Receive Date: 20170121
  Receipt Date: 20170121
  Transmission Date: 20170428
  Serious: Yes (Other)
  Sender: FDA-Public Use
  Company Number: None

PATIENT
  Age: 23 Year
  Sex: Male
  Weight: 90 kg

DRUGS (4)
  1. MUCINEX D [Concomitant]
     Active Substance: GUAIFENESIN\PSEUDOEPHEDRINE HYDROCHLORIDE
  2. IBUPROFEN. [Concomitant]
     Active Substance: IBUPROFEN
  3. ZICAM COLD REMEDY RAPIDMELTS WITH ECHINACEA [Concomitant]
     Active Substance: ECHINACEA ANGUSTIFOLIA\HOMEOPATHICS\ZINC ACETATE ANHYDROUS\ZINC GLUCONATE
  4. AFRIN NO DRIP EXTRA MOISTURIZING [Suspect]
     Active Substance: OXYMETAZOLINE HYDROCHLORIDE
     Indication: SINUS CONGESTION
     Dosage: ?          QUANTITY:3 SPRAY(S);OTHER ROUTE:NASAL SPRAY?
     Route: 045
     Dates: start: 20170120, end: 20170121

REACTIONS (1)
  - Anosmia [None]

NARRATIVE: CASE EVENT DATE: 20170121
